FAERS Safety Report 7871081-8 (Version None)
Quarter: 2011Q4

REPORT INFORMATION
  Report Type: 
  Country: None (occurrence: None)
  Receive Date: 20111029
  Receipt Date: 20110224
  Transmission Date: 20120403
  Serious: No
  Sender: FDA-Public Use
  Company Number: US-AMGEN-USASP2011007620

PATIENT
  Age: 58 Year
  Sex: Female

DRUGS (2)
  1. ENBREL [Suspect]
     Indication: RHEUMATOID ARTHRITIS
     Dosage: 50 MG, QWK
     Route: 058
     Dates: start: 20110113
  2. TREXALL [Concomitant]
     Dosage: UNK

REACTIONS (3)
  - ERUCTATION [None]
  - ABDOMINAL RIGIDITY [None]
  - ANIMAL SCRATCH [None]
